FAERS Safety Report 19731643 (Version 1)
Quarter: 2021Q3

REPORT INFORMATION
  Report Type: Report from Study
  Country: DE (occurrence: DE)
  Receive Date: 20210820
  Receipt Date: 20210820
  Transmission Date: 20211014
  Serious: Yes (Death, Life-Threatening, Hospitalization, Disabling, Other)
  Sender: FDA-Public Use
  Company Number: DE-TAKEDA-I003-2007-00116

PATIENT
  Age: 12 Year
  Sex: Male

DRUGS (15)
  1. PROPANOLOL                         /00030001/ [Concomitant]
     Active Substance: PROPRANOLOL HYDROCHLORIDE
     Dosage: UNK UNK, UNKNOWN
     Route: 048
     Dates: start: 200701, end: 20070321
  2. IPRATROPIUM BROMIDE. [Concomitant]
     Active Substance: IPRATROPIUM BROMIDE
     Indication: PRODUCT USED FOR UNKNOWN INDICATION
     Dosage: 14 DOSAGE FORMS, 4X/DAY:QID ? 4 X 14 DROPS
     Route: 055
  3. MELATONIN [Concomitant]
     Active Substance: MELATONIN
     Indication: INSOMNIA
     Dosage: UNK UNK, UNKNOWN
     Route: 065
  4. DEXA POLYSPECTRAN [Concomitant]
     Indication: OTITIS EXTERNA
     Dosage: 1 DOSAGE FORMS, 3X/DAY:TID ? 3 X 1 DROP IN BOTH EARS
     Route: 065
  5. FUROSEMIDE. [Concomitant]
     Active Substance: FUROSEMIDE
     Indication: CARDIAC FAILURE CONGESTIVE
     Dosage: UNK UNK, UNKNOWN
     Route: 042
     Dates: start: 20070105
  6. IDURSULFASE [Suspect]
     Active Substance: IDURSULFASE
     Indication: MUCOPOLYSACCHARIDOSIS II
     Dosage: 0.5 MILLIGRAM/KILOGRAM, 1X/WEEK
     Route: 041
     Dates: start: 20070215
  7. CANDESARTAN CILEXETIL. [Concomitant]
     Active Substance: CANDESARTAN CILEXETIL
     Indication: HYPERTENSION
     Dosage: 4 MG, 1X/1NOCTE
     Route: 048
     Dates: end: 2007
  8. FUROSEMIDE. [Concomitant]
     Active Substance: FUROSEMIDE
     Indication: DIURETIC THERAPY
     Dosage: 5 MG, 4X/DAY:QID
     Route: 048
     Dates: start: 2006
  9. PROPANOLOL                         /00030001/ [Concomitant]
     Active Substance: PROPRANOLOL HYDROCHLORIDE
     Indication: HYPERTENSION
     Dosage: UNK UNK, UNKNOWN
     Route: 065
  10. VANCOMYCIN [Concomitant]
     Active Substance: VANCOMYCIN
     Indication: PYREXIA
     Dosage: UNK UNK, UNKNOWN
     Route: 065
     Dates: start: 20061025
  11. BUDESONIDE. [Concomitant]
     Active Substance: BUDESONIDE
     Indication: PRODUCT USED FOR UNKNOWN INDICATION
     Dosage: .5 MG, 2X/DAY:BID
     Route: 055
  12. CHLORAL HYDRATE [Concomitant]
     Active Substance: CHLORAL HYDRATE
     Indication: INSOMNIA
     Dosage: UNK UNK, UNKNOWN
     Route: 065
  13. PROPANOLOL                         /00030001/ [Concomitant]
     Active Substance: PROPRANOLOL HYDROCHLORIDE
     Dosage: 40 MG, 3X/DAY:TID ? DAILY DOSED INCREASED TO 3 X 40 MG
     Route: 048
     Dates: start: 2006, end: 200701
  14. SALBUTAMOL [Concomitant]
     Active Substance: ALBUTEROL
     Indication: PRODUCT USED FOR UNKNOWN INDICATION
     Dosage: 10 DOSAGE FORMS, 4X/DAY:QID ? 4 X 10 DROPS
     Route: 055
  15. SPIRONOLACTONE. [Concomitant]
     Active Substance: SPIRONOLACTONE
     Indication: CARDIAC FAILURE CONGESTIVE
     Dosage: 50 MG, 1X/DAY:QD
     Route: 048
     Dates: start: 2006

REACTIONS (13)
  - Pleural effusion [Unknown]
  - Bronchial obstruction [Unknown]
  - Hypercapnia [Unknown]
  - Respiratory failure [Fatal]
  - Cardiac failure [Fatal]
  - Pulmonary oedema [Unknown]
  - Pneumonia [Recovered/Resolved with Sequelae]
  - Hypoventilation [Unknown]
  - Arrhythmia [Unknown]
  - Pseudomonas infection [Unknown]
  - Klebsiella infection [Unknown]
  - Post procedural haemorrhage [Recovered/Resolved with Sequelae]
  - Pulmonary congestion [Unknown]

NARRATIVE: CASE EVENT DATE: 20060824
